FAERS Safety Report 19555099 (Version 1)
Quarter: 2021Q3

REPORT INFORMATION
  Report Type: Spontaneous
  Country: US (occurrence: US)
  Receive Date: 20210715
  Receipt Date: 20210715
  Transmission Date: 20211014
  Serious: Yes (Death, Life-Threatening, Hospitalization)
  Sender: FDA-Public Use
  Company Number: US-MYLANLABS-2021M1042227

PATIENT
  Age: 33 Year
  Sex: Male

DRUGS (1)
  1. VENLAFAXINE [Suspect]
     Active Substance: VENLAFAXINE HYDROCHLORIDE
     Indication: PRODUCT USED FOR UNKNOWN INDICATION
     Dosage: UNK
     Route: 048

REACTIONS (15)
  - Serotonin syndrome [Unknown]
  - Hypotension [Unknown]
  - Hyperhidrosis [Unknown]
  - Acute respiratory distress syndrome [Unknown]
  - Acidosis [Unknown]
  - Toxicity to various agents [Fatal]
  - Hypoxia [Not Recovered/Not Resolved]
  - Electrocardiogram QT prolonged [Unknown]
  - Pulseless electrical activity [Unknown]
  - Seizure [Recovered/Resolved]
  - Oliguria [Unknown]
  - Clonus [Unknown]
  - Completed suicide [Fatal]
  - Cardiac arrest [Unknown]
  - Hyperthermia [Unknown]
